FAERS Safety Report 6139634-5 (Version None)
Quarter: 2009Q1

REPORT INFORMATION
  Report Type: 
  Country: None (occurrence: None)
  Receive Date: 20090330
  Receipt Date: 20080821
  Transmission Date: 20090719
  Serious: Yes (Other)
  Sender: FDA-Public Use
  Company Number: 176509USA

PATIENT
  Sex: Female

DRUGS (1)
  1. AMOXICILLIN [Suspect]

REACTIONS (5)
  - ANAPHYLACTIC REACTION [None]
  - ASTHMA [None]
  - DERMATITIS CONTACT [None]
  - REACTION TO AZO-DYES [None]
  - URTICARIA [None]
